FAERS Safety Report 15755944 (Version 1)
Quarter: 2018Q4

REPORT INFORMATION
  Report Type: Spontaneous
  Country: US (occurrence: US)
  Receive Date: 20181218
  Receipt Date: 20181218
  Transmission Date: 20190205
  Serious: No
  Sender: FDA-Public Use
  Company Number: None

PATIENT

DRUGS (2)
  1. HYDROMORPHONE HCL [Suspect]
     Active Substance: HYDROMORPHONE HYDROCHLORIDE
  2. MORPHINE [Suspect]
     Active Substance: MORPHINE

REACTIONS (4)
  - Wrong product administered [None]
  - Paradoxical drug reaction [None]
  - Psychomotor hyperactivity [None]
  - Product dispensing error [None]

NARRATIVE: CASE EVENT DATE: 2018
